FAERS Safety Report 16910459 (Version 1)
Quarter: 2019Q4

REPORT INFORMATION
  Report Type: Spontaneous
  Country: US (occurrence: US)
  Receive Date: 20190909
  Receipt Date: 20190909
  Transmission Date: 20200122
  Serious: No
  Sender: FDA-Public Use
  Company Number: None

PATIENT
  Age: 20 Year
  Sex: Male
  Weight: 97.52 kg

DRUGS (3)
  1. LIQUID GOLD VAPE [Suspect]
     Active Substance: CANNABIDIOL\DEVICE\HERBALS
     Indication: SUBSTANCE USE
  2. K2 [Suspect]
     Active Substance: JWH-018
  3. DXM [DEXTROMETHORPHAN] [Suspect]
     Active Substance: DEXTROMETHORPHAN

REACTIONS (4)
  - Malaise [None]
  - Back pain [None]
  - Product formulation issue [None]
  - Neck pain [None]

NARRATIVE: CASE EVENT DATE: 20190605
